FAERS Safety Report 24894401 (Version 1)
Quarter: 2025Q1

REPORT INFORMATION
  Report Type: Report from Study
  Country: IN (occurrence: IN)
  Receive Date: 20250128
  Receipt Date: 20250128
  Transmission Date: 20250409
  Serious: Yes (Hospitalization)
  Sender: ROCHE
  Company Number: IN-ROCHE-3328387

PATIENT
  Age: 60 Year
  Sex: Female
  Weight: 72.5 kg

DRUGS (3)
  1. KADCYLA [Suspect]
     Active Substance: ADO-TRASTUZUMAB EMTANSINE
     Indication: Breast cancer metastatic
     Route: 040
     Dates: start: 20221013
  2. KADCYLA [Suspect]
     Active Substance: ADO-TRASTUZUMAB EMTANSINE
     Route: 040
  3. KADCYLA [Suspect]
     Active Substance: ADO-TRASTUZUMAB EMTANSINE
     Route: 040

REACTIONS (10)
  - Off label use [Unknown]
  - Hypertension [Unknown]
  - Headache [Unknown]
  - Weight decreased [Unknown]
  - Mastectomy [Unknown]
  - Blood sodium decreased [Unknown]
  - Blood potassium decreased [Unknown]
  - Aortic valve incompetence [Unknown]
  - Ill-defined disorder [Unknown]
  - Breast disorder [Unknown]

NARRATIVE: CASE EVENT DATE: 20230516
